FAERS Safety Report 4772329-9 (Version None)
Quarter: 2005Q3

REPORT INFORMATION
  Report Type: 
  Country: None (occurrence: None)
  Receive Date: 20050919
  Receipt Date: 20040914
  Transmission Date: 20060218
  Serious: No
  Sender: FDA-Public Use
  Company Number: US-BRISTOL-MYERS SQUIBB COMPANY-12702163

PATIENT
  Age: 27 Year
  Sex: Male
  Weight: 88 kg

DRUGS (4)
  1. TRIMOX [Suspect]
     Indication: HELICOBACTER INFECTION
     Route: 048
     Dates: start: 20040801, end: 20040907
  2. SYNTHROID [Concomitant]
  3. ZOLOFT [Concomitant]
  4. HYDROCODONE [Concomitant]

REACTIONS (1)
  - DRUG SCREEN POSITIVE [None]
